FAERS Safety Report 9695782 (Version 1)
Quarter: 2013Q4

REPORT INFORMATION
  Report Type: Spontaneous
  Country: US (occurrence: None)
  Receive Date: 20131118
  Receipt Date: 20131118
  Transmission Date: 20140711
  Serious: Yes (Life-Threatening)
  Sender: FDA-Public Use
  Company Number: None

PATIENT
  Age: 53 None
  Sex: Male
  Weight: 138.2 kg

DRUGS (1)
  1. LISINOPRIL [Suspect]
     Indication: HYPERTENSION
     Route: 048
     Dates: start: 20120302, end: 20130919

REACTIONS (5)
  - Lip swelling [None]
  - Throat irritation [None]
  - Tongue disorder [None]
  - Paraesthesia oral [None]
  - Angioedema [None]
